FAERS Safety Report 21216119 (Version 2)
Quarter: 2022Q4

REPORT INFORMATION
  Report Type: Spontaneous
  Country: FR (occurrence: FR)
  Receive Date: 20220816
  Receipt Date: 20221020
  Transmission Date: 20230112
  Serious: Yes (Other)
  Sender: FDA-Public Use
  Company Number: FR-002147023-NVSC2022FR131852

PATIENT
  Age: 28 Year
  Sex: Female

DRUGS (3)
  1. CISPLATIN [Interacting]
     Active Substance: CISPLATIN
     Indication: Adenocarcinoma
     Dosage: 100 MG/M2 (D1)
  2. PEGFILGRASTIM [Interacting]
     Active Substance: PEGFILGRASTIM
     Indication: Product used for unknown indication
  3. ETOPOSIDE [Concomitant]
     Active Substance: ETOPOSIDE
     Indication: Adenocarcinoma
     Dosage: 100 MG/M2 (D1, D2, D3)

REACTIONS (4)
  - Drug interaction [Unknown]
  - Hyperleukocytosis [Recovering/Resolving]
  - Extremity necrosis [Recovering/Resolving]
  - Off label use [Unknown]
